FAERS Safety Report 5488863-2 (Version None)
Quarter: 2007Q4

REPORT INFORMATION
  Report Type: 
  Country: None (occurrence: None)
  Receive Date: 20071017
  Receipt Date: 20071005
  Transmission Date: 20080405
  Serious: Yes (Other)
  Sender: FDA-Public Use
  Company Number: US-PFIZER INC-2007085038

PATIENT
  Sex: Male
  Weight: 75 kg

DRUGS (5)
  1. CHANTIX [Suspect]
     Indication: SMOKING CESSATION THERAPY
     Route: 048
     Dates: start: 20070101, end: 20070901
  2. ABILIFY [Concomitant]
  3. COGENTIN [Concomitant]
  4. DEPAKOTE [Concomitant]
  5. RISPERDAL [Concomitant]
     Indication: SCHIZOPHRENIA

REACTIONS (5)
  - AGGRESSION [None]
  - DYSPHONIA [None]
  - INSOMNIA [None]
  - SCHIZOAFFECTIVE DISORDER [None]
  - THINKING ABNORMAL [None]
